FAERS Safety Report 23053137 (Version 1)
Quarter: 2023Q4

REPORT INFORMATION
  Report Type: Spontaneous
  Country: HR (occurrence: HR)
  Receive Date: 20231011
  Receipt Date: 20231011
  Transmission Date: 20240109
  Serious: Yes (Other)
  Sender: FDA-Public Use
  Company Number: None

PATIENT
  Sex: Female

DRUGS (2)
  1. CLONAZEPAM [Suspect]
     Active Substance: CLONAZEPAM
     Indication: Suicidal ideation
     Dosage: INGESTION?DAILY DOSE: 150 DOSAGE FORM
     Route: 048
     Dates: start: 202308, end: 202308
  2. VENLAFAXINE HYDROCHLORIDE [Suspect]
     Active Substance: VENLAFAXINE HYDROCHLORIDE
     Indication: Suicidal ideation
     Dosage: DAILY DOSE: 30 DOSAGE FORM
     Route: 048
     Dates: start: 202308, end: 202308

REACTIONS (3)
  - Depressed level of consciousness [Unknown]
  - Suicide attempt [Unknown]
  - Intentional overdose [Unknown]

NARRATIVE: CASE EVENT DATE: 20230830
